FAERS Safety Report 6184135-1 (Version None)
Quarter: 2009Q2

REPORT INFORMATION
  Report Type: 
  Country: None (occurrence: None)
  Receive Date: 20090508
  Receipt Date: 20090505
  Transmission Date: 20091009
  Serious: Yes (Other)
  Sender: FDA-Public Use
  Company Number: PHHY2009TR17045

PATIENT

DRUGS (6)
  1. DIGOXIN [Suspect]
  2. METOPROLOL [Suspect]
  3. VERAPAMIL [Concomitant]
  4. WARFARIN SODIUM [Concomitant]
     Dosage: UNK
  5. ASPIRIN [Concomitant]
     Dosage: 325 MG, QD
  6. AMIODARONE [Concomitant]
     Indication: CARDIOVERSION
     Dosage: 300 MG OVER 1HR, THEN 15 - 20 MG/KG FOR THE REMAINING 23 HRS

REACTIONS (1)
  - CEREBRAL HAEMORRHAGE [None]
